FAERS Safety Report 10458410 (Version 1)
Quarter: 2014Q3

REPORT INFORMATION
  Report Type: Spontaneous
  Country: US (occurrence: US)
  Receive Date: 20140917
  Receipt Date: 20140917
  Transmission Date: 20150326
  Serious: No
  Sender: FDA-Public Use
  Company Number: US-SHIRE-US201405741

PATIENT
  Age: 40 Year
  Sex: Female

DRUGS (1)
  1. FIRAZYR [Suspect]
     Active Substance: ICATIBANT ACETATE
     Indication: PRODUCT USED FOR UNKNOWN INDICATION
     Dosage: UNK, UNKNOWN
     Route: 058
     Dates: start: 201312

REACTIONS (6)
  - Injection site erythema [Unknown]
  - Dizziness [Unknown]
  - Skin disorder [Unknown]
  - Injection site swelling [Unknown]
  - Injection site pain [Unknown]
  - Rash [Unknown]
